FAERS Safety Report 5468731-2 (Version None)
Quarter: 2007Q3

REPORT INFORMATION
  Report Type: 
  Country: None (occurrence: None)
  Receive Date: 20070926
  Receipt Date: 20070917
  Transmission Date: 20080115
  Serious: Yes (Death, Hospitalization, Other)
  Sender: FDA-Public Use
  Company Number: US-PFIZER INC-2007077766

PATIENT
  Sex: Female

DRUGS (3)
  1. BEXTRA [Suspect]
     Indication: ARTHRITIS
     Dates: start: 20030201, end: 20040316
  2. BEXTRA [Suspect]
     Indication: JOINT STIFFNESS
  3. BEXTRA [Suspect]
     Indication: PAIN

REACTIONS (3)
  - HYPERTENSION [None]
  - ISCHAEMIC CEREBRAL INFARCTION [None]
  - MYOCARDIAL INFARCTION [None]
